FAERS Safety Report 25698905 (Version 1)
Quarter: 2025Q3

REPORT INFORMATION
  Report Type: Spontaneous
  Country: US (occurrence: None)
  Receive Date: 20250818
  Receipt Date: 20250818
  Transmission Date: 20251020
  Serious: Yes (Life-Threatening, Hospitalization)
  Sender: FDA-CTU
  Company Number: None

PATIENT
  Age: 24 Year
  Sex: Male

DRUGS (2)
  1. RIFAMPIN [Suspect]
     Active Substance: RIFAMPIN
  2. RIFAMPIN [Concomitant]
     Active Substance: RIFAMPIN

REACTIONS (2)
  - Seizure [None]
  - Acute respiratory failure [None]

NARRATIVE: CASE EVENT DATE: 20240718
